FAERS Safety Report 17889742 (Version 2)
Quarter: 2020Q3

REPORT INFORMATION
  Report Type: Report from Study
  Country: BR (occurrence: BR)
  Receive Date: 20200612
  Receipt Date: 20200621
  Transmission Date: 20201105
  Serious: Yes (Other)
  Sender: FDA-Public Use
  Company Number: NVSC2020BR161311

PATIENT
  Age: 81 Year
  Sex: Female

DRUGS (9)
  1. TIMOLOL. [Suspect]
     Active Substance: TIMOLOL
     Indication: GLAUCOMA
     Dosage: 1 DRP, BID
     Route: 065
  2. GLIBENCLAMIDE [Concomitant]
     Active Substance: GLYBURIDE
     Indication: DIABETES MELLITUS
     Dosage: 1 OT, QD
     Route: 048
  3. TRAVATAN [Suspect]
     Active Substance: TRAVOPROST
     Indication: GLAUCOMA
     Dosage: UNK
     Route: 065
  4. ATENOLOL. [Concomitant]
     Active Substance: ATENOLOL
     Indication: HYPERTENSION
     Dosage: 4 OT, QD
     Route: 048
  5. BESILAPIN [Concomitant]
     Indication: HYPERTENSION
     Dosage: 1 OT, QD
     Route: 048
  6. AZOPT [Suspect]
     Active Substance: BRINZOLAMIDE
     Indication: GLAUCOMA
     Route: 065
  7. AZORGA [Suspect]
     Active Substance: BRINZOLAMIDE\TIMOLOL MALEATE
     Indication: GLAUCOMA
     Dosage: UNK
     Route: 065
  8. TRAVOPROST. [Suspect]
     Active Substance: TRAVOPROST
     Indication: GLAUCOMA
     Route: 065
  9. COMBIGAN [Concomitant]
     Active Substance: BRIMONIDINE TARTRATE\TIMOLOL MALEATE
     Indication: PRODUCT USED FOR UNKNOWN INDICATION
     Route: 065

REACTIONS (18)
  - Limb discomfort [Recovering/Resolving]
  - Fall [Recovering/Resolving]
  - Ocular hyperaemia [Recovered/Resolved]
  - Headache [Recovered/Resolved]
  - Drug intolerance [Unknown]
  - Malaise [Recovering/Resolving]
  - Skin lesion [Recovering/Resolving]
  - Confusional state [Unknown]
  - Abdominal pain upper [Recovering/Resolving]
  - Blindness unilateral [Unknown]
  - Head injury [Recovering/Resolving]
  - Fear [Recovering/Resolving]
  - Cough [Unknown]
  - Pain [Recovering/Resolving]
  - Hypoacusis [Unknown]
  - Musculoskeletal stiffness [Recovering/Resolving]
  - Wound [Recovering/Resolving]
  - Hypertension [Unknown]

NARRATIVE: CASE EVENT DATE: 20200603
